FAERS Safety Report 24780993 (Version 1)
Quarter: 2024Q4

REPORT INFORMATION
  Report Type: Spontaneous
  Country: US (occurrence: US)
  Receive Date: 20241227
  Receipt Date: 20241227
  Transmission Date: 20250115
  Serious: Yes (Hospitalization)
  Sender: HETERO
  Company Number: US-HETERO-HET2024US04902

PATIENT
  Age: 44 Year
  Sex: Female

DRUGS (4)
  1. ESCITALOPRAM [Suspect]
     Active Substance: ESCITALOPRAM OXALATE
     Indication: Depression
     Dosage: 5 MILLIGRAM, QD (TWO MONTH PRIOR)
     Route: 065
  2. ESCITALOPRAM [Suspect]
     Active Substance: ESCITALOPRAM OXALATE
     Indication: Bipolar disorder
  3. DESMOPRESSIN [Suspect]
     Active Substance: DESMOPRESSIN
     Indication: Diabetes insipidus
     Dosage: WITH FEW DOSES CHANGES
     Route: 045
     Dates: start: 2007
  4. DESMOPRESSIN [Suspect]
     Active Substance: DESMOPRESSIN
     Dosage: 10 MICROGRAMS, TID (FOUR 10MCG SPRAYS IN EACH NOSTRIL THREE TIMES DAILY)
     Route: 045
     Dates: start: 2020

REACTIONS (2)
  - Polyuria [Recovering/Resolving]
  - Hyponatraemia [Recovered/Resolved]
